FAERS Safety Report 21285157 (Version 1)
Quarter: 2022Q3

REPORT INFORMATION
  Report Type: Spontaneous
  Country: DK (occurrence: DK)
  Receive Date: 20220902
  Receipt Date: 20220902
  Transmission Date: 20221026
  Serious: Yes (Hospitalization)
  Sender: FDA-Public Use
  Company Number: None

PATIENT
  Age: 70 Year
  Sex: Female

DRUGS (2)
  1. EPIRUBICIN [Suspect]
     Active Substance: EPIRUBICIN
     Indication: Breast cancer
     Dosage: STRENGTH: UNKNOWN , DOSAGE: UNKNOWN , THERAPY END DATE : NASK
     Route: 065
     Dates: start: 201812
  2. CYCLOPHOSPHAMIDE [Suspect]
     Active Substance: CYCLOPHOSPHAMIDE
     Indication: Breast cancer
     Dosage: STRENGTH: UNKNOWN , DOSAGE: UNKNOWN , THERAPY END DATE : NASK
     Route: 065
     Dates: start: 201812

REACTIONS (4)
  - Pulmonary embolism [Unknown]
  - Abscess intestinal [Unknown]
  - Abdominal pain [Unknown]
  - Constipation [Recovered/Resolved]

NARRATIVE: CASE EVENT DATE: 20190101
